FAERS Safety Report 20797819 (Version 1)
Quarter: 2022Q2

REPORT INFORMATION
  Report Type: Spontaneous
  Country: US (occurrence: None)
  Receive Date: 20220506
  Receipt Date: 20220506
  Transmission Date: 20220721
  Serious: No
  Sender: FDA-Public Use
  Company Number: None

PATIENT
  Age: 90 Year
  Sex: Female
  Weight: 27.67 kg

DRUGS (8)
  1. IBRANCE [Suspect]
     Active Substance: PALBOCICLIB
     Indication: Breast cancer
     Dosage: OTHER FREQUENCY : 21ON7OFF;?
     Route: 048
  2. CALCIUM CARBONATE [Concomitant]
  3. ERGOCALCIFEROL [Concomitant]
     Active Substance: ERGOCALCIFEROL
  4. GENTEAL SEVERE [Concomitant]
  5. LASIX [Concomitant]
  6. MELATONIN [Concomitant]
     Active Substance: MELATONIN
  7. MULTIVITAMIN [Concomitant]
  8. VITAMIN B COMPLEX [Concomitant]

REACTIONS (1)
  - Drug intolerance [None]
